FAERS Safety Report 22338700 (Version 2)
Quarter: 2024Q2

REPORT INFORMATION
  Report Type: Spontaneous
  Country: PT (occurrence: PT)
  Receive Date: 20230518
  Receipt Date: 20240423
  Transmission Date: 20240716
  Serious: Yes (Other)
  Sender: FDA-Public Use
  Company Number: PT-SUN PHARMACEUTICAL INDUSTRIES LTD-2023R1-388396

PATIENT
  Age: 13 Year
  Sex: Male

DRUGS (4)
  1. CALCITRIOL [Suspect]
     Active Substance: CALCITRIOL
     Indication: Hypocalcaemia
     Dosage: 2 MICROGRAM, DAILY
     Route: 048
  2. SEVELAMER [Suspect]
     Active Substance: SEVELAMER
     Indication: Hyperphosphataemia
     Dosage: 2400 MILLIGRAM, DAILY
     Route: 048
  3. CALCIUM CARBONATE [Suspect]
     Active Substance: CALCIUM CARBONATE
     Indication: Hypocalcaemia
     Dosage: 9000 MILLIGRAM, DAILY
     Route: 048
  4. AMILORIDE HCL W/ HYDROCHLOROTHIAZIDE [Suspect]
     Active Substance: AMILORIDE HYDROCHLORIDE\HYDROCHLOROTHIAZIDE
     Indication: Hypocalcaemia
     Dosage: 50-5 MG, DAILY
     Route: 048

REACTIONS (1)
  - Drug ineffective [Unknown]
